FAERS Safety Report 16696792 (Version 1)
Quarter: 2019Q3

REPORT INFORMATION
  Report Type: Spontaneous
  Country: US (occurrence: US)
  Receive Date: 20190812
  Receipt Date: 20190812
  Transmission Date: 20191004
  Serious: Yes (Hospitalization)
  Sender: FDA-Public Use
  Company Number: None

PATIENT
  Sex: Male

DRUGS (17)
  1. COLACE [Concomitant]
     Active Substance: DOCUSATE SODIUM
  2. GABAPENTIN. [Concomitant]
     Active Substance: GABAPENTIN
  3. LEVOTHYROXINE. [Concomitant]
     Active Substance: LEVOTHYROXINE
  4. LIPITOR [Concomitant]
     Active Substance: ATORVASTATIN CALCIUM
  5. GLATIRAMER [Suspect]
     Active Substance: GLATIRAMER
     Indication: MULTIPLE SCLEROSIS
     Dosage: ?          OTHER FREQUENCY:THREE TIMES A WEEK;?
     Route: 058
     Dates: start: 20190509
  6. NOVOLIN [Concomitant]
     Active Substance: INSULIN HUMAN
  7. POTASSIUM [Concomitant]
     Active Substance: POTASSIUM
  8. RANITIDINE. [Concomitant]
     Active Substance: RANITIDINE
  9. DILTIAZEM ER [Concomitant]
     Active Substance: DILTIAZEM
  10. LOSARTAN. [Concomitant]
     Active Substance: LOSARTAN
  11. NEXIUM [Concomitant]
     Active Substance: ESOMEPRAZOLE MAGNESIUM
  12. NORVASC [Concomitant]
     Active Substance: AMLODIPINE BESYLATE
  13. PLAVIX [Concomitant]
     Active Substance: CLOPIDOGREL BISULFATE
  14. LOPRESSOR [Concomitant]
     Active Substance: METOPROLOL TARTRATE
  15. VITAMIN D [Concomitant]
     Active Substance: VITAMIN D NOS
  16. ZOLOFT [Concomitant]
     Active Substance: SERTRALINE HYDROCHLORIDE
  17. DITROPAN XL [Concomitant]
     Active Substance: OXYBUTYNIN CHLORIDE

REACTIONS (3)
  - Fall [None]
  - Movement disorder [None]
  - Asthenia [None]
